FAERS Safety Report 15858470 (Version 1)
Quarter: 2019Q1

REPORT INFORMATION
  Report Type: Spontaneous
  Country: US (occurrence: US)
  Receive Date: 20190123
  Receipt Date: 20190123
  Transmission Date: 20190417
  Serious: Yes (Other)
  Sender: FDA-Public Use
  Company Number: None

PATIENT
  Age: 61 Year
  Sex: Male
  Weight: 76.5 kg

DRUGS (10)
  1. VITAMIN D [Concomitant]
     Active Substance: CHOLECALCIFEROL
  2. OCUVITE [Concomitant]
     Active Substance: VITAMINS
  3. CINNAMON. [Concomitant]
     Active Substance: CINNAMON
  4. JARDIANCE [Suspect]
     Active Substance: EMPAGLIFLOZIN
     Indication: TYPE 2 DIABETES MELLITUS
     Dosage: ?          QUANTITY:1 TABLET(S);?
     Route: 048
     Dates: start: 20180801
  5. LISINOPRIL. [Concomitant]
     Active Substance: LISINOPRIL
  6. MULTI VITAMIN [Concomitant]
     Active Substance: VITAMINS
  7. METFORMIN [Concomitant]
     Active Substance: METFORMIN HYDROCHLORIDE
  8. LANTUS [Concomitant]
     Active Substance: INSULIN GLARGINE
  9. ATORVASTATIN [Concomitant]
     Active Substance: ATORVASTATIN
  10. PROBIOTICS [Concomitant]
     Active Substance: PROBIOTICS NOS

REACTIONS (2)
  - Fungal infection [None]
  - Pruritus genital [None]

NARRATIVE: CASE EVENT DATE: 20180801
